FAERS Safety Report 12143583 (Version 2)
Quarter: 2016Q2

REPORT INFORMATION
  Report Type: Spontaneous
  Country: US (occurrence: US)
  Receive Date: 20160304
  Receipt Date: 20160413
  Transmission Date: 20160815
  Serious: No
  Sender: FDA-Public Use
  Company Number: US-JNJFOC-20160215665

PATIENT
  Age: 84 Year
  Sex: Female
  Weight: 68.04 kg

DRUGS (2)
  1. WOMENS ROGAINE UNSCENTED [Suspect]
     Active Substance: MINOXIDIL
     Indication: NAIL DISORDER
     Dosage: NIGHTLY
     Route: 061
  2. WOMENS ROGAINE UNSCENTED [Suspect]
     Active Substance: MINOXIDIL
     Route: 061

REACTIONS (6)
  - Product use issue [Unknown]
  - Drug administered at inappropriate site [Unknown]
  - Product packaging issue [Unknown]
  - Therapeutic response unexpected [Unknown]
  - Wrong technique in product usage process [Unknown]
  - Off label use [Unknown]
